FAERS Safety Report 9924953 (Version 1)
Quarter: 2014Q1

REPORT INFORMATION
  Report Type: Spontaneous
  Country: US (occurrence: None)
  Receive Date: 20140224
  Receipt Date: 20140224
  Transmission Date: 20141002
  Serious: Yes (Life-Threatening, Hospitalization, Other)
  Sender: FDA-Public Use
  Company Number: None

PATIENT
  Age: 36 Year
  Sex: Female
  Weight: 90.72 kg

DRUGS (1)
  1. MIRENA [Suspect]

REACTIONS (17)
  - Ruptured ectopic pregnancy [None]
  - Cardio-respiratory arrest [None]
  - Pain [None]
  - Muscle spasms [None]
  - Haemorrhage [None]
  - Nausea [None]
  - Weight decreased [None]
  - Pelvic pain [None]
  - Fatigue [None]
  - Device dislocation [None]
  - Dizziness [None]
  - Depression [None]
  - Weight increased [None]
  - Abscess limb [None]
  - Tachycardia [None]
  - Palpitations [None]
  - Migraine [None]
